FAERS Safety Report 4468355-X (Version None)
Quarter: 2004Q4

REPORT INFORMATION
  Report Type: 
  Country: None (occurrence: None)
  Receive Date: 20041007
  Receipt Date: 20040929
  Transmission Date: 20050328
  Serious: Yes (Other)
  Sender: FDA-Public Use
  Company Number: PHEH2004US10521

PATIENT
  Sex: Male

DRUGS (3)
  1. AREDIA [Suspect]
     Dosage: 90 MG, UNK
     Dates: start: 20020201, end: 20040601
  2. DOXIL [Concomitant]
  3. THALIDOMIDE [Concomitant]

REACTIONS (1)
  - BONE DEBRIDEMENT [None]
